FAERS Safety Report 22147069 (Version 1)
Quarter: 2023Q1

REPORT INFORMATION
  Report Type: Spontaneous
  Country: US (occurrence: US)
  Receive Date: 20230328
  Receipt Date: 20230328
  Transmission Date: 20230417
  Serious: No
  Sender: FDA-Public Use
  Company Number: US-drreddys-SPO/USA/23/0161545

PATIENT
  Age: 13 Year

DRUGS (2)
  1. ACCUTANE [Suspect]
     Active Substance: ISOTRETINOIN
     Indication: Product used for unknown indication
     Dosage: RMA ISSUE DATE: 01 NOVEMBER 2022 03:02:36 PM, 14 DECEMBER 2022 01:34:45 PM, 13 JANUARY 2023 08:01:28
  2. ACCUTANE [Suspect]
     Active Substance: ISOTRETINOIN
     Dosage: RMA ISSUE DATES: 14 DECEMBER 2022 01:34:45 PM

REACTIONS (1)
  - Adverse drug reaction [Unknown]
